FAERS Safety Report 12050937 (Version 1)
Quarter: 2016Q1

REPORT INFORMATION
  Report Type: Spontaneous
  Country: US (occurrence: US)
  Receive Date: 20160209
  Receipt Date: 20160209
  Transmission Date: 20160526
  Serious: No
  Sender: FDA-Public Use
  Company Number: US-BIOGEN-2012BI017441

PATIENT
  Age: 48 Year
  Sex: Female

DRUGS (1)
  1. AVONEX [Suspect]
     Active Substance: INTERFERON BETA-1A
     Indication: MULTIPLE SCLEROSIS
     Route: 030
     Dates: start: 20000601

REACTIONS (6)
  - Rosacea [Not Recovered/Not Resolved]
  - Rash [Not Recovered/Not Resolved]
  - Pain [Recovered/Resolved]
  - Weight increased [Not Recovered/Not Resolved]
  - Insomnia [Recovered/Resolved]
  - Menopausal symptoms [Not Recovered/Not Resolved]

NARRATIVE: CASE EVENT DATE: 20120517
